FAERS Safety Report 18038739 (Version 2)
Quarter: 2020Q3

REPORT INFORMATION
  Report Type: Report from Study
  Country: US (occurrence: US)
  Receive Date: 20200717
  Receipt Date: 20200923
  Transmission Date: 20201103
  Serious: Yes (Other)
  Sender: FDA-Public Use
  Company Number: US-BRISTOL-MYERS SQUIBB COMPANY-BMS-2020-056660

PATIENT
  Age: 43 Year
  Sex: Female
  Weight: 78.02 kg

DRUGS (1)
  1. APIXABAN [Suspect]
     Active Substance: APIXABAN
     Indication: LIVER DISORDER
     Dosage: 5 MILLIGRAM
     Route: 065
     Dates: start: 20150520

REACTIONS (3)
  - Lung disorder [Unknown]
  - Illness [Unknown]
  - Intentional product use issue [Unknown]

NARRATIVE: CASE EVENT DATE: 20150520
